FAERS Safety Report 6210629-6 (Version None)
Quarter: 2009Q2

REPORT INFORMATION
  Report Type: 
  Country: None (occurrence: None)
  Receive Date: 20090529
  Receipt Date: 20090529
  Transmission Date: 20091009
  Serious: No
  Sender: FDA-Public Use
  Company Number: None

PATIENT
  Age: 48 Year
  Sex: Female
  Weight: 61.2356 kg

DRUGS (1)
  1. OXYCODONE 5 MG QUALITEST [Suspect]
     Indication: PAIN
     Dosage: 5 MG 4 HOUR INTERVALS PO
     Route: 048
     Dates: start: 20090527, end: 20090528

REACTIONS (2)
  - DRUG EFFECT DECREASED [None]
  - PRODUCT QUALITY ISSUE [None]
